FAERS Safety Report 11404799 (Version 2)
Quarter: 2015Q3

REPORT INFORMATION
  Report Type: Spontaneous
  Country: BR (occurrence: BR)
  Receive Date: 20150821
  Receipt Date: 20150901
  Transmission Date: 20151125
  Serious: Yes (Other)
  Sender: FDA-Public Use
  Company Number: ALCN2015BR005050

PATIENT
  Age: 4 Year
  Sex: Male
  Weight: 20.8 kg

DRUGS (1)
  1. TOBREX [Suspect]
     Active Substance: TOBRAMYCIN
     Indication: CONJUNCTIVITIS
     Dosage: UNK UNK, Q3H X7 DAYS
     Route: 047
     Dates: start: 20150810, end: 20150810

REACTIONS (4)
  - Eye haemorrhage [Recovered/Resolved]
  - Visual acuity reduced [Recovered/Resolved]
  - Ocular hyperaemia [Recovered/Resolved]
  - Eye pain [Recovered/Resolved]

NARRATIVE: CASE EVENT DATE: 20150810
